FAERS Safety Report 5379076-3 (Version None)
Quarter: 2007Q3

REPORT INFORMATION
  Report Type: 
  Country: None (occurrence: None)
  Receive Date: 20070702
  Receipt Date: 20070615
  Transmission Date: 20080115
  Serious: Yes (Other)
  Sender: FDA-Public Use
  Company Number: 2007US-08092

PATIENT
  Age: 37 Year
  Sex: Female

DRUGS (1)
  1. ISOTRETINOIN [Suspect]
     Indication: ACNE
     Dosage: 30 MG, ORAL
     Route: 048
     Dates: start: 20070417, end: 20070614

REACTIONS (1)
  - RHINOPLASTY [None]
